FAERS Safety Report 8983265 (Version 1)
Quarter: 2012Q4

REPORT INFORMATION
  Report Type: Report from Study
  Country: TR (occurrence: TR)
  Receive Date: 20121221
  Receipt Date: 20121221
  Transmission Date: 20130627
  Serious: Yes (Hospitalization)
  Sender: FDA-Public Use
  Company Number: TR-US-EMD SERONO, INC.-7183779

PATIENT
  Sex: Female

DRUGS (2)
  1. REBIF [Suspect]
     Indication: MULTIPLE SCLEROSIS
     Route: 058
     Dates: start: 2010, end: 201203
  2. PAROL [Suspect]
     Indication: PAIN
     Route: 048
     Dates: start: 2010, end: 201203

REACTIONS (1)
  - Gait disturbance [Recovered/Resolved]
